FAERS Safety Report 21180422 (Version 1)
Quarter: 2022Q3

REPORT INFORMATION
  Report Type: Spontaneous
  Country: CA (occurrence: CA)
  Receive Date: 20220806
  Receipt Date: 20220806
  Transmission Date: 20221027
  Serious: Yes (Other)
  Sender: FDA-Public Use
  Company Number: None

PATIENT
  Age: 65 Year
  Sex: Female

DRUGS (2)
  1. METHOTREXATE [Suspect]
     Active Substance: METHOTREXATE
     Indication: Product used for unknown indication
     Route: 065
  2. ADALIMUMAB [Concomitant]
     Active Substance: ADALIMUMAB
     Route: 058

REACTIONS (7)
  - Drug intolerance [Unknown]
  - Inflammation [Unknown]
  - Joint swelling [Unknown]
  - Liver injury [Unknown]
  - Lymphocytosis [Unknown]
  - Musculoskeletal stiffness [Unknown]
  - Tenderness [Unknown]
